FAERS Safety Report 4439609-8 (Version None)
Quarter: 2004Q3

REPORT INFORMATION
  Report Type: 
  Country: None (occurrence: None)
  Receive Date: 20040830
  Receipt Date: 20040816
  Transmission Date: 20050211
  Serious: Yes (Hospitalization, Other)
  Sender: FDA-Public Use
  Company Number: HQWYE729203AUG04

PATIENT
  Age: 38 Year
  Sex: Male

DRUGS (1)
  1. MINOCIN [Suspect]
     Indication: CHLAMYDIAL INFECTION
     Dosage: 100 MG DAILY
     Route: 048
     Dates: start: 20040728, end: 20040728

REACTIONS (4)
  - CHILLS [None]
  - DISSEMINATED INTRAVASCULAR COAGULATION [None]
  - PYREXIA [None]
  - SHOCK [None]
